FAERS Safety Report 5557214-7 (Version None)
Quarter: 2007Q4

REPORT INFORMATION
  Report Type: 
  Country: None (occurrence: None)
  Receive Date: 20071211
  Receipt Date: 20071130
  Transmission Date: 20080405
  Serious: No
  Sender: FDA-Public Use
  Company Number: THYR-10494

PATIENT
  Age: 54 Year
  Sex: Female
  Weight: 61 kg

DRUGS (2)
  1. THYROGEN [Suspect]
     Indication: DIAGNOSTIC PROCEDURE
     Dosage: 0.9 MG QD IM
     Route: 030
     Dates: start: 20070910, end: 20070911
  2. LEVOTHYROX [Concomitant]

REACTIONS (4)
  - ACTIVITIES OF DAILY LIVING IMPAIRED [None]
  - ARTHRALGIA [None]
  - MUSCLE SPASMS [None]
  - OEDEMA PERIPHERAL [None]
